FAERS Safety Report 5196580-1 (Version None)
Quarter: 2006Q4

REPORT INFORMATION
  Report Type: 
  Country: None (occurrence: None)
  Receive Date: 20061229
  Receipt Date: 20061229
  Transmission Date: 20070319
  Serious: Yes (Hospitalization)
  Sender: FDA-Public Use
  Company Number: None

PATIENT
  Age: 74 Year
  Sex: Male
  Weight: 89.8122 kg

DRUGS (13)
  1. NIASPAN [Suspect]
     Indication: HYPERLIPIDAEMIA
     Dosage: 500 MG PO QD
     Route: 048
     Dates: start: 20061215, end: 20061224
  2. NIASPAN [Suspect]
  3. ZOCOR [Concomitant]
  4. CYCLOSPORINE [Concomitant]
  5. LYRICA [Concomitant]
  6. NOVOLOG [Concomitant]
  7. LANTUS [Concomitant]
  8. NYSTATIN [Concomitant]
  9. OMEPRAZOLE [Concomitant]
  10. LISINOPRIL [Concomitant]
  11. GANCICLOVIR [Concomitant]
  12. BACTRIM [Concomitant]
  13. TEMAZEPAM [Concomitant]

REACTIONS (4)
  - ARTHRALGIA [None]
  - HEPATITIS [None]
  - MUSCLE SPASMS [None]
  - RHABDOMYOLYSIS [None]
